FAERS Safety Report 7311671-4 (Version None)
Quarter: 2011Q1

REPORT INFORMATION
  Report Type: 
  Country: None (occurrence: None)
  Receive Date: 20110224
  Receipt Date: 20110216
  Transmission Date: 20110831
  Serious: Yes (Other)
  Sender: FDA-Public Use
  Company Number: US-AMGEN-USASP2011009298

PATIENT
  Age: 19 Year
  Sex: Female

DRUGS (1)
  1. ENBREL [Suspect]
     Indication: PRODUCT USED FOR UNKNOWN INDICATION
     Dosage: 50 MG, QWK
     Dates: start: 20110208

REACTIONS (9)
  - DEPRESSION [None]
  - ERUCTATION [None]
  - HEADACHE [None]
  - ABDOMINAL PAIN UPPER [None]
  - ANXIETY [None]
  - MUSCLE TWITCHING [None]
  - VOMITING [None]
  - DIARRHOEA [None]
  - FATIGUE [None]
